FAERS Safety Report 5234164-7 (Version None)
Quarter: 2007Q1

REPORT INFORMATION
  Report Type: 
  Country: None (occurrence: None)
  Receive Date: 20070207
  Receipt Date: 20070125
  Transmission Date: 20070707
  Serious: Yes (Other)
  Sender: FDA-Public Use
  Company Number: FACT0700029

PATIENT
  Age: 40 Year
  Sex: Female
  Weight: 65.8 kg

DRUGS (2)
  1. FACTIVE [Suspect]
     Indication: RESPIRATORY TRACT INFECTION BACTERIAL
     Dosage: 320 MG, QD, ORAL
     Route: 048
     Dates: start: 20070124, end: 20070124
  2. DESLORATADINE [Concomitant]

REACTIONS (6)
  - CHEST DISCOMFORT [None]
  - EYE SWELLING [None]
  - ORAL PRURITUS [None]
  - SWELLING FACE [None]
  - THROAT IRRITATION [None]
  - URTICARIA GENERALISED [None]
